FAERS Safety Report 10228203 (Version 3)
Quarter: 2014Q3

REPORT INFORMATION
  Report Type: Report from Study
  Country: US (occurrence: US)
  Receive Date: 20140610
  Receipt Date: 20140718
  Transmission Date: 20150326
  Serious: Yes (Other)
  Sender: FDA-Public Use
  Company Number: US-JNJFOC-20140601471

PATIENT
  Age: 68 Year
  Sex: Female
  Weight: 92.08 kg

DRUGS (20)
  1. WARFARIN SODIUM. [Concomitant]
     Active Substance: WARFARIN SODIUM
     Indication: PROPHYLAXIS
     Route: 048
     Dates: start: 2006
  2. SIMVASTATIN. [Concomitant]
     Active Substance: SIMVASTATIN
     Indication: BLOOD CHOLESTEROL ABNORMAL
     Dates: end: 20140421
  3. INVOKANA [Suspect]
     Active Substance: CANAGLIFLOZIN
     Indication: TYPE 2 DIABETES MELLITUS
     Route: 048
     Dates: start: 201306, end: 20140412
  4. BETAMETHASONE [Concomitant]
     Active Substance: BETAMETHASONE
     Indication: FUNGAL INFECTION
     Route: 061
  5. LEVOTHYROXINE [Concomitant]
     Active Substance: LEVOTHYROXINE
     Indication: THYROIDECTOMY
     Route: 048
     Dates: start: 2013
  6. ATORVASTATIN [Concomitant]
     Active Substance: ATORVASTATIN
     Indication: BLOOD CHOLESTEROL ABNORMAL
     Route: 048
     Dates: start: 20140422
  7. METHOCARBAMOL. [Concomitant]
     Active Substance: METHOCARBAMOL
     Indication: MUSCLE SPASMS
     Route: 048
     Dates: start: 2011
  8. LISINOPRIL. [Concomitant]
     Active Substance: LISINOPRIL
     Indication: HYPERTENSION
     Route: 048
     Dates: start: 2006
  9. OMEPRAZOLE. [Concomitant]
     Active Substance: OMEPRAZOLE
     Indication: DYSPEPSIA
     Route: 048
     Dates: start: 2011
  10. LANTUS [Concomitant]
     Active Substance: INSULIN GLARGINE
     Indication: DIABETES MELLITUS
     Route: 058
     Dates: start: 2007
  11. ASPIRIN. [Concomitant]
     Active Substance: ASPIRIN
     Indication: CARDIOVASCULAR EVENT PROPHYLAXIS
     Route: 048
     Dates: start: 2007
  12. METFORMIN [Concomitant]
     Active Substance: METFORMIN HYDROCHLORIDE
     Indication: DIABETES MELLITUS
     Route: 048
     Dates: start: 2006
  13. NYSTATIN. [Concomitant]
     Active Substance: NYSTATIN
     Dates: start: 2014
  14. ATENOLOL AND CHLORTHALIDONE [Concomitant]
     Active Substance: ATENOLOL\CHLORTHALIDONE
     Indication: HYPERTENSION
     Route: 048
     Dates: start: 2013
  15. CALCIUM [Concomitant]
     Active Substance: CALCIUM
     Route: 048
  16. GABAPENTIN. [Concomitant]
     Active Substance: GABAPENTIN
     Indication: SPINAL OSTEOARTHRITIS
     Route: 048
     Dates: start: 20130121
  17. HYDROCODONE BIT/APAP [Concomitant]
     Active Substance: ACETAMINOPHEN\HYDROCODONE BITARTRATE
     Indication: SPINAL OSTEOARTHRITIS
     Route: 048
  18. FERROUS GLUCONATE [Concomitant]
     Active Substance: FERROUS GLUCONATE
     Indication: ANAEMIA
     Route: 048
     Dates: start: 2011
  19. VITAMIN C [Concomitant]
     Active Substance: ASCORBIC ACID
  20. HUMALOG [Concomitant]
     Active Substance: INSULIN LISPRO

REACTIONS (9)
  - Dizziness postural [Recovered/Resolved]
  - Peripheral swelling [Recovered/Resolved]
  - Hypotension [Recovered/Resolved]
  - Dysstasia [Recovered/Resolved]
  - Oedema peripheral [Recovered/Resolved]
  - Dizziness [Recovered/Resolved]
  - Gait disturbance [Recovered/Resolved]
  - Hypertension [Unknown]
  - Tinnitus [Recovered/Resolved]

NARRATIVE: CASE EVENT DATE: 201311
